FAERS Safety Report 9222043 (Version 2)
Quarter: 2013Q2

REPORT INFORMATION
  Report Type: Spontaneous
  Country: US (occurrence: US)
  Receive Date: 20130410
  Receipt Date: 20130506
  Transmission Date: 20140414
  Serious: No
  Sender: FDA-Public Use
  Company Number: US-PFIZER INC-2013107742

PATIENT
  Age: 41 Year
  Sex: Male
  Weight: 86.17 kg

DRUGS (8)
  1. CAVERJECT [Suspect]
     Indication: ERECTILE DYSFUNCTION
     Dosage: 20 MG, AS NEEDED
     Dates: start: 1997, end: 2000
  2. CAVERJECT [Suspect]
     Dosage: 20 MG, AS NEEDED
     Dates: start: 201301
  3. CAVERJECT [Suspect]
     Dosage: 20 UG, UNK
  4. CAVERJECT [Suspect]
     Dosage: 1 ML, UNK
     Route: 017
     Dates: start: 20130123, end: 20130320
  5. CAVERJECT [Suspect]
     Dosage: 40 UG, UNK
  6. LORTAB [Concomitant]
     Dosage: UNK
  7. BACLOFEN [Concomitant]
     Dosage: UNK
  8. AMANTADINE [Concomitant]
     Dosage: UNK

REACTIONS (1)
  - Drug ineffective [Recovered/Resolved]
